FAERS Safety Report 22184363 (Version 5)
Quarter: 2023Q2

REPORT INFORMATION
  Report Type: Report from Study
  Country: PT (occurrence: PT)
  Receive Date: 20230407
  Receipt Date: 20230419
  Transmission Date: 20230721
  Serious: Yes (Hospitalization, Other)
  Sender: FDA-Public Use
  Company Number: PT-ABBVIE-4719426

PATIENT
  Age: 75 Year
  Sex: Female

DRUGS (7)
  1. CARBIDOPA\LEVODOPA [Suspect]
     Active Substance: CARBIDOPA\LEVODOPA
     Indication: Parkinson^s disease
     Dosage: 20 MG + 5 MG?FREQUENCY TEXT: MORN:10.2CC;MAIN:4.5CC/H;EXTRA:1CC?LAST ADMIN DATE- 2023
     Route: 050
     Dates: start: 20230327
  2. CARBIDOPA\LEVODOPA [Suspect]
     Active Substance: CARBIDOPA\LEVODOPA
     Dosage: 20 MG + 5 MG?FREQUENCY TEXT: MORN:15.2CC;MAIN:5.5CC/H;EXTRA:3CC
     Route: 050
     Dates: start: 202304, end: 202304
  3. CARBIDOPA\LEVODOPA [Suspect]
     Active Substance: CARBIDOPA\LEVODOPA
     Dosage: 20 MG + 5 MG
     Route: 050
     Dates: start: 202304
  4. OMEPRAZOLE [Concomitant]
     Active Substance: OMEPRAZOLE
     Indication: Product used for unknown indication
     Dosage: 1 TABLET?1 TABLET?FORM STRENGTH: 20 MILLIGRAM?START DATE TEXT: BEFORE DUODOPA
     Route: 048
  5. amoxicillin+ clavulamic acid [Concomitant]
     Indication: Product used for unknown indication
     Dosage: 875+125MG
     Dates: start: 202304
  6. JANUVIA [Concomitant]
     Active Substance: SITAGLIPTIN PHOSPHATE
     Indication: Type 2 diabetes mellitus
     Dosage: 1 TABLET?1 TABLET?FORM STRENGTH: 100 MILLIGRAM?START DATE TEXT: BEFORE DUODOPA
     Route: 048
  7. ATORVASTATIN [Concomitant]
     Active Substance: ATORVASTATIN
     Indication: Dyslipidaemia
     Dosage: 1 TABLET?FORM STRENGTH: 10 MILLIGRAM?START DATE TEXT: BEFORE DUODOPA
     Route: 048

REACTIONS (7)
  - Pneumoperitoneum [Recovered/Resolved]
  - Abdominal pain [Recovering/Resolving]
  - Swelling [Recovered/Resolved]
  - Stoma site discharge [Recovering/Resolving]
  - Stoma site erythema [Recovering/Resolving]
  - Stoma site infection [Recovering/Resolving]
  - Stoma site haemorrhage [Recovered/Resolved]

NARRATIVE: CASE EVENT DATE: 20230404
